FAERS Safety Report 23351568 (Version 1)
Quarter: 2023Q4

REPORT INFORMATION
  Report Type: Spontaneous
  Country: US (occurrence: US)
  Receive Date: 20231229
  Receipt Date: 20231229
  Transmission Date: 20240109
  Serious: Yes (Other)
  Sender: FDA-Public Use
  Company Number: US-GTI-000021

PATIENT
  Age: 40 Year
  Sex: Female

DRUGS (3)
  1. PREDNISONE [Suspect]
     Active Substance: PREDNISONE
     Indication: Endocarditis
     Route: 065
  2. EVEROLIMUS [Suspect]
     Active Substance: EVEROLIMUS
     Indication: Endocarditis
     Route: 065
  3. BELATACEPT [Suspect]
     Active Substance: BELATACEPT
     Indication: Endocarditis
     Route: 065

REACTIONS (3)
  - C3 glomerulopathy [Recovered/Resolved]
  - Disease recurrence [Recovered/Resolved]
  - Proteinuria [Recovered/Resolved]
